FAERS Safety Report 9109622 (Version 2)
Quarter: 2013Q2

REPORT INFORMATION
  Report Type: Spontaneous
  Country: JP (occurrence: JP)
  Receive Date: 20130222
  Receipt Date: 20130506
  Transmission Date: 20140414
  Serious: Yes (Hospitalization)
  Sender: FDA-Public Use
  Company Number: PHHY2012JP115232

PATIENT
  Sex: 0
  Weight: 73 kg

DRUGS (2)
  1. GLIVEC [Suspect]
     Indication: GASTROINTESTINAL STROMAL TUMOUR
     Dosage: 400 MG, UNK
  2. GLIVEC [Suspect]
     Dosage: 400 MG/DAY

REACTIONS (14)
  - Abdominal pain lower [Unknown]
  - Pyrexia [Unknown]
  - Abdominal distension [Unknown]
  - Tumour necrosis [Unknown]
  - Duodenal perforation [Unknown]
  - Gastrointestinal haemorrhage [Unknown]
  - Gastrointestinal stromal tumour [Unknown]
  - Malignant neoplasm progression [Unknown]
  - Neoplasm recurrence [Unknown]
  - Anaemia [Unknown]
  - Inflammation [Unknown]
  - Fistula [Unknown]
  - Haematemesis [Unknown]
  - Diarrhoea [Unknown]
